FAERS Safety Report 10551961 (Version 3)
Quarter: 2015Q1

REPORT INFORMATION
  Report Type: Spontaneous
  Country: US (occurrence: US)
  Receive Date: 20141029
  Receipt Date: 20150120
  Transmission Date: 20150720
  Serious: Yes (Hospitalization, Other)
  Sender: FDA-Public Use
  Company Number: US-009507513-1410USA013465

PATIENT
  Age: 21 Year
  Sex: Female
  Weight: 82.99 kg

DRUGS (3)
  1. FLUTICASONE [Concomitant]
     Active Substance: FLUTICASONE\FLUTICASONE PROPIONATE
  2. OMEPRAZOLE. [Concomitant]
     Active Substance: OMEPRAZOLE
  3. NEXPLANON [Suspect]
     Active Substance: ETONOGESTREL
     Indication: CONTRACEPTION
     Dosage: 1 SINGLE ROD
     Route: 059
     Dates: start: 20140701

REACTIONS (10)
  - Blighted ovum [Recovered/Resolved]
  - Unintended pregnancy [Recovered/Resolved]
  - Menstruation delayed [Unknown]
  - Sexual abuse [Unknown]
  - Adnexa uteri pain [Recovered/Resolved]
  - Feeling abnormal [Unknown]
  - Bacterial vaginosis [Not Recovered/Not Resolved]
  - Pallor [Unknown]
  - Chills [Unknown]
  - Hypoaesthesia [Recovered/Resolved]

NARRATIVE: CASE EVENT DATE: 2014
